FAERS Safety Report 10728229 (Version 1)
Quarter: 2015Q1

REPORT INFORMATION
  Report Type: Spontaneous
  Country: US (occurrence: US)
  Receive Date: 20150121
  Receipt Date: 20150121
  Transmission Date: 20150721
  Serious: Yes (Hospitalization, Other)
  Sender: FDA-Public Use
  Company Number: US-AMGEN-USASP2015003738

PATIENT
  Age: 55 Year
  Sex: Male

DRUGS (11)
  1. 5-FLUOROURACIL                     /00098801/ [Concomitant]
     Active Substance: FLUOROURACIL
     Dosage: 2400 MG/M2 OVER 46 H
     Route: 042
  2. 5-FLUOROURACIL                     /00098801/ [Concomitant]
     Active Substance: FLUOROURACIL
     Indication: COLORECTAL CANCER METASTATIC
     Dosage: UNK UNK, WEEKLY
  3. DOXYCYCLINE. [Concomitant]
     Active Substance: DOXYCYCLINE
     Indication: PROPHYLAXIS
     Dosage: UNK
  4. PANITUMUMAB [Suspect]
     Active Substance: PANITUMUMAB
     Indication: COLORECTAL CANCER METASTATIC
     Dosage: 6 MG/KG, EVERY 2 WEEKS
     Route: 042
  5. IRINOTECAN [Concomitant]
     Active Substance: IRINOTECAN
     Dosage: 100 MG/M2, WEEKLY
     Route: 042
  6. PEGFILGRASTIM [Suspect]
     Active Substance: PEGFILGRASTIM
     Indication: NEUTROPHIL COUNT ABNORMAL
     Dosage: 6 MG, UNK
     Route: 058
  7. IRINOTECAN [Concomitant]
     Active Substance: IRINOTECAN
     Indication: COLORECTAL CANCER METASTATIC
     Dosage: UNK, WEEKLY
  8. REGORAFENIB [Suspect]
     Active Substance: REGORAFENIB
     Indication: COLORECTAL CANCER METASTATIC
     Dosage: 40 MG, DAILY FOR 21 DAYS ON FOLLOWED BY 7 DAYS OFF
     Route: 048
  9. LEUCOVORIN                         /00566701/ [Concomitant]
     Active Substance: LEUCOVORIN
     Indication: COLORECTAL CANCER METASTATIC
     Dosage: UNK UNK, WEEKLY
  10. BEVACIZUMAB [Concomitant]
     Active Substance: BEVACIZUMAB
     Indication: COLORECTAL CANCER METASTATIC
     Dosage: UNK
  11. OXALIPLATIN. [Concomitant]
     Active Substance: OXALIPLATIN
     Indication: COLORECTAL CANCER METASTATIC
     Dosage: 65 MG/M2, UNK
     Route: 042

REACTIONS (18)
  - Cardiomyopathy [Unknown]
  - Metastases to liver [Unknown]
  - Arteriosclerosis coronary artery [Unknown]
  - Malaise [Unknown]
  - Mental status changes [Unknown]
  - Disease progression [Unknown]
  - Carcinoembryonic antigen increased [Unknown]
  - Coronary artery occlusion [Unknown]
  - Coronary artery stenosis [Unknown]
  - Abdominal pain [Unknown]
  - Asthenia [Unknown]
  - Pneumonia [Unknown]
  - Leukocytosis [Unknown]
  - Rash [Unknown]
  - Dizziness [Unknown]
  - Electrocardiogram change [Unknown]
  - Septic shock [Unknown]
  - Headache [Unknown]
